FAERS Safety Report 4452132-X (Version None)
Quarter: 2004Q3

REPORT INFORMATION
  Report Type: 
  Country: None (occurrence: None)
  Receive Date: 20040913
  Receipt Date: 20040716
  Transmission Date: 20050211
  Serious: No
  Sender: FDA-Public Use
  Company Number: 2004-BP-05795BP

PATIENT
  Age: 70 Year
  Sex: Female

DRUGS (4)
  1. SPIRIVA [Suspect]
     Indication: CHRONIC OBSTRUCTIVE AIRWAYS DISEASE
     Dosage: 18 MCG DAILY, IH
     Route: 055
     Dates: start: 20030101
  2. XOPENEX [Concomitant]
  3. ADVAIR (SERETIDE MITE) [Concomitant]
  4. OXYGEN (OXYGEN) [Concomitant]

REACTIONS (4)
  - DYSPNOEA [None]
  - EYE PAIN [None]
  - HEADACHE [None]
  - KERATOCONJUNCTIVITIS SICCA [None]
